FAERS Safety Report 6418651-1 (Version None)
Quarter: 2009Q4

REPORT INFORMATION
  Report Type: 
  Country: None (occurrence: None)
  Receive Date: 20091026
  Receipt Date: 20091013
  Transmission Date: 20100525
  Serious: Yes (Hospitalization)
  Sender: FDA-Public Use
  Company Number: ADR39632009

PATIENT
  Age: 56 Year
  Sex: Female

DRUGS (6)
  1. SIMVASTATIN [Suspect]
     Indication: BLOOD CHOLESTEROL INCREASED
     Dosage: 40 MG
     Route: 048
     Dates: start: 20080501, end: 20080801
  2. LANSOPRAZOLE [Concomitant]
  3. CO-CODAMOL [Concomitant]
  4. DICLOFENAC [Concomitant]
  5. FLUOXETINE [Concomitant]
  6. TIBOLONE [Concomitant]

REACTIONS (6)
  - ASTHENIA [None]
  - EYE SWELLING [None]
  - MALAISE [None]
  - NIGHTMARE [None]
  - PHARYNGEAL OEDEMA [None]
  - SWOLLEN TONGUE [None]
